FAERS Safety Report 5234800-5 (Version None)
Quarter: 2007Q1

REPORT INFORMATION
  Report Type: 
  Country: None (occurrence: None)
  Receive Date: 20070209
  Receipt Date: 20070202
  Transmission Date: 20070707
  Serious: Yes (Hospitalization)
  Sender: FDA-Public Use
  Company Number: DE-ABBOTT-07P-062-0358159-00

PATIENT
  Age: 67 Year
  Sex: Male

DRUGS (3)
  1. HUMIRA [Suspect]
     Indication: RHEUMATOID ARTHRITIS
     Route: 058
     Dates: start: 20060701, end: 20061001
  2. GLUCOCORTICOIDS [Concomitant]
     Indication: RHEUMATOID ARTHRITIS
     Route: 048
  3. NSAR [Concomitant]
     Indication: RHEUMATOID ARTHRITIS

REACTIONS (1)
  - VASCULAR BYPASS GRAFT [None]
